FAERS Safety Report 17611682 (Version 2)
Quarter: 2020Q2

REPORT INFORMATION
  Report Type: Spontaneous
  Country: CH (occurrence: CH)
  Receive Date: 20200401
  Receipt Date: 20200409
  Transmission Date: 20200713
  Serious: Yes (Other)
  Sender: FDA-Public Use
  Company Number: CH-BAYER-2020-041969

PATIENT
  Age: 12 Year
  Sex: Male
  Weight: 63.5 kg

DRUGS (1)
  1. JIVI [Suspect]
     Active Substance: DAMOCTOCOG ALFA PEGOL
     Indication: HAEMOPHILIA
     Dosage: 2000 IU WEEKLY
     Dates: start: 20200224, end: 20200311

REACTIONS (6)
  - Hypersensitivity [Recovered/Resolved]
  - Drug specific antibody present [None]
  - Blood pressure increased [Recovered/Resolved]
  - Haemorrhage [None]
  - Dizziness [Recovered/Resolved]
  - Heart rate increased [Recovered/Resolved]

NARRATIVE: CASE EVENT DATE: 20200306
